FAERS Safety Report 14970951 (Version 1)
Quarter: 2018Q2

REPORT INFORMATION
  Report Type: Spontaneous
  Country: US (occurrence: US)
  Receive Date: 20180514
  Receipt Date: 20180514
  Transmission Date: 20180711
  Serious: Yes (Hospitalization)
  Sender: FDA-Public Use
  Company Number: None

PATIENT
  Age: 70 Year
  Sex: Female

DRUGS (1)
  1. CAPECITABINE TAB 500 MG [Suspect]
     Active Substance: CAPECITABINE

REACTIONS (7)
  - Blood potassium decreased [None]
  - Anticonvulsant drug level increased [None]
  - Palmar-plantar erythrodysaesthesia syndrome [None]
  - Urinary tract infection [None]
  - Blood magnesium decreased [None]
  - Confusional state [None]
  - Dizziness [None]

NARRATIVE: CASE EVENT DATE: 20180514
